FAERS Safety Report 15746989 (Version 2)
Quarter: 2018Q4

REPORT INFORMATION
  Report Type: Spontaneous
  Country: CN (occurrence: CN)
  Receive Date: 20181220
  Receipt Date: 20181226
  Transmission Date: 20190205
  Serious: Yes (Life-Threatening, Hospitalization)
  Sender: FDA-Public Use
  Company Number: CN-MYLANLABS-2018M1095165

PATIENT
  Age: 59 Year
  Sex: Male

DRUGS (1)
  1. CALCITONIN SALMON MYLAN [Suspect]
     Active Substance: CALCITONIN SALMON
     Indication: FEMUR FRACTURE
     Dosage: UNK
     Dates: start: 201811, end: 201811

REACTIONS (3)
  - Vomiting [Recovered/Resolved]
  - Miliaria [Recovered/Resolved]
  - Seizure [Recovered/Resolved]

NARRATIVE: CASE EVENT DATE: 201811
